FAERS Safety Report 8252758-1 (Version None)
Quarter: 2012Q2

REPORT INFORMATION
  Report Type: 
  Country: None (occurrence: None)
  Receive Date: 20120402
  Receipt Date: 20110404
  Transmission Date: 20120825
  Serious: No
  Sender: FDA-Public Use
  Company Number: US-ABBOTT-11P-163-0804388-00

PATIENT
  Sex: Male
  Weight: 100 kg

DRUGS (6)
  1. TESTOSTERONE [Suspect]
     Indication: BLOOD TESTOSTERONE DECREASED
     Dosage: DAILY DOSE: 5 GRAM(S), 4 SQUIRTS DAILY
     Route: 062
     Dates: start: 20110308, end: 20110326
  2. LORATADINE [Concomitant]
     Indication: SINUS HEADACHE
     Dosage: DAILY DOSE: 10 MILLIGRAM(S)
     Route: 048
  3. ACETYLSALICYLIC ACID [Concomitant]
     Indication: CARDIAC DISORDER
     Dosage: DAILY DOSE: 81 MILLIGRAM(S)
     Route: 048
  4. LEVOTHYROXINE [Concomitant]
     Indication: FATIGUE
     Dosage: DAILY DOSE: 125 MICROGRAM(S)
     Route: 048
  5. TESTOSTERONE [Suspect]
     Dosage: DAILY DOSE: 5 GRAM(S)
     Route: 062
     Dates: start: 20110331, end: 20110331
  6. METOPROLOL [Concomitant]
     Indication: ARRHYTHMIA
     Dosage: DAILY DOSE: 25 MILLIGRAM(S)
     Route: 048

REACTIONS (1)
  - ANXIETY [None]
